FAERS Safety Report 6386500-6 (Version None)
Quarter: 2009Q4

REPORT INFORMATION
  Report Type: 
  Country: None (occurrence: None)
  Receive Date: 20091002
  Receipt Date: 20090610
  Transmission Date: 20100525
  Serious: No
  Sender: FDA-Public Use
  Company Number: US-ASTRAZENECA-2009UW14844

PATIENT
  Age: 59 Year
  Sex: Female

DRUGS (4)
  1. ARIMIDEX [Suspect]
     Indication: BREAST CANCER
     Route: 048
     Dates: start: 20090601
  2. ARMOUR THYROID [Concomitant]
  3. ASCORBIC ACID [Concomitant]
  4. ADVIL [Concomitant]

REACTIONS (2)
  - HYPERSOMNIA [None]
  - INSOMNIA [None]
